FAERS Safety Report 4898174-1 (Version None)
Quarter: 2006Q1

REPORT INFORMATION
  Report Type: 
  Country: None (occurrence: None)
  Receive Date: 20060127
  Receipt Date: 20050118
  Transmission Date: 20060701
  Serious: Yes (Hospitalization)
  Sender: FDA-Public Use
  Company Number: 200410657

PATIENT
  Age: 33 Year
  Sex: Female

DRUGS (1)
  1. BOTULINUM TOXIN TYPE A [Suspect]
     Indication: SKIN WRINKLING

REACTIONS (11)
  - AUTONOMIC NERVOUS SYSTEM IMBALANCE [None]
  - BOTULISM [None]
  - EUSTACHIAN TUBE DYSFUNCTION [None]
  - FEELING HOT [None]
  - HEADACHE [None]
  - IMPAIRED GASTRIC EMPTYING [None]
  - NEUROMUSCULAR BLOCKADE [None]
  - OTITIS MEDIA [None]
  - PAIN [None]
  - PARALYSIS [None]
  - RESPIRATORY FAILURE [None]
